FAERS Safety Report 16361061 (Version 2)
Quarter: 2019Q2

REPORT INFORMATION
  Report Type: Spontaneous
  Country: FR (occurrence: FR)
  Receive Date: 20190528
  Receipt Date: 20190530
  Transmission Date: 20190711
  Serious: Yes (Hospitalization)
  Sender: FDA-Public Use
  Company Number: FR-MYLANLABS-2019M1049223

PATIENT
  Age: 65 Year
  Sex: Male
  Weight: 78 kg

DRUGS (16)
  1. THALIDOMIDE [Concomitant]
     Active Substance: THALIDOMIDE
     Dosage: 100 UNK (D1-D28)
     Route: 048
     Dates: start: 20170505, end: 20170605
  2. GABAPENTIN. [Concomitant]
     Active Substance: GABAPENTIN
     Indication: PRODUCT USED FOR UNKNOWN INDICATION
     Dosage: UNK
  3. DARATUMUMAB [Suspect]
     Active Substance: DARATUMUMAB
     Indication: PLASMA CELL MYELOMA
     Dosage: UNK
  4. VELCADE [Concomitant]
     Active Substance: BORTEZOMIB
     Dosage: UNK (D1,D4,D8,D11)
     Dates: start: 20170602
  5. DEXAMETHASONE. [Concomitant]
     Active Substance: DEXAMETHASONE
     Dosage: 40 MG,(40/20 MG D1,D2,D8,D9,D15,D16,D22,D23)
     Dates: start: 20170607
  6. DEXAMETHASONE. [Concomitant]
     Active Substance: DEXAMETHASONE
     Dosage: 40 UNK (40/20 MG D1,D2,D8,D9,D15,D16,D22,D23)
     Dates: start: 20170608
  7. TRAMADOL. [Suspect]
     Active Substance: TRAMADOL
     Indication: BACK PAIN
     Dosage: 100 MILLIGRAM
  8. TRAMADOL. [Suspect]
     Active Substance: TRAMADOL
     Dosage: 100 MG, EVERY 12 HRS
     Dates: start: 20170608
  9. VELCADE [Concomitant]
     Active Substance: BORTEZOMIB
     Indication: PLASMA CELL MYELOMA
     Dosage: 2.4 MILLIGRAM (D1,D4,D8,D11)
     Route: 058
     Dates: start: 20170505, end: 20180116
  10. DEXAMETHASONE. [Concomitant]
     Active Substance: DEXAMETHASONE
     Indication: PLASMA CELL MYELOMA
     Dosage: UNK (40/20 MG D1,D2,D8,D9,D15,D16,D22,D23)
     Route: 048
     Dates: start: 20170505, end: 20180124
  11. DEXAMETHASONE. [Concomitant]
     Active Substance: DEXAMETHASONE
     Dosage: 40/20 MG D1,D2,D8,D9,D15,D16,D22,D23  UNK
     Dates: start: 20170606
  12. VELCADE [Concomitant]
     Active Substance: BORTEZOMIB
     Dosage: 2.4 UNK (D1,D4,D8,D11)
     Route: 058
     Dates: end: 20180205
  13. DEXAMETHASONE. [Concomitant]
     Active Substance: DEXAMETHASONE
     Dosage: 100 UNK (D1-D28)
     Route: 048
     Dates: start: 20170505, end: 20170605
  14. THALIDOMIDE [Concomitant]
     Active Substance: THALIDOMIDE
     Dosage: 100 MG, (D1-D28 )
     Route: 048
     Dates: end: 20180124
  15. THALIDOMIDE [Concomitant]
     Active Substance: THALIDOMIDE
     Dosage: UNK (D1-D28 )
     Dates: start: 20170606
  16. VELCADE [Concomitant]
     Active Substance: BORTEZOMIB
     Dosage: UNK (D1,D4,D8,D11)
     Dates: start: 20170607

REACTIONS (2)
  - Spinal fracture [Recovered/Resolved]
  - Constipation [Recovered/Resolved]

NARRATIVE: CASE EVENT DATE: 20170606
